FAERS Safety Report 8383648-1 (Version None)
Quarter: 2012Q1

REPORT INFORMATION
  Report Type: 
  Country: None (occurrence: None)
  Receive Date: 20120323
  Receipt Date: 20110315
  Transmission Date: 20120608
  Serious: Yes (Hospitalization)
  Sender: FDA-Public Use
  Company Number: 163-21880-11032399

PATIENT
  Age: 84 Year
  Sex: Female

DRUGS (1)
  1. REVLIMID [Suspect]
     Indication: MULTIPLE MYELOMA
     Dosage: 15 MG, DAILY X21, PO
     Route: 048
     Dates: start: 20100304

REACTIONS (4)
  - PELVIC FRACTURE [None]
  - CONFUSIONAL STATE [None]
  - INFLUENZA [None]
  - FALL [None]
